FAERS Safety Report 8237017-5 (Version None)
Quarter: 2012Q1

REPORT INFORMATION
  Report Type: 
  Country: None (occurrence: None)
  Receive Date: 20120327
  Receipt Date: 20120321
  Transmission Date: 20120608
  Serious: Yes (Hospitalization, Other)
  Sender: FDA-Public Use
  Company Number: PHHY2011DE96880

PATIENT
  Sex: Male

DRUGS (2)
  1. ZOMETA [Suspect]
     Indication: METASTASES TO BONE
     Dosage: 4 MG/100ML, EVERY 4 WEEKS
     Route: 042
     Dates: start: 20070101
  2. ENOXAPARIN SODIUM [Suspect]
     Indication: DEEP VEIN THROMBOSIS
     Dosage: 70 MG, BID
     Route: 058

REACTIONS (11)
  - BONE LESION [None]
  - DEEP VEIN THROMBOSIS [None]
  - PAIN IN JAW [None]
  - ATRIAL FIBRILLATION [None]
  - OSTEONECROSIS OF JAW [None]
  - APHAGIA [None]
  - SWELLING [None]
  - OSTEOMYELITIS [None]
  - GINGIVAL INFECTION [None]
  - LYMPHADENOPATHY [None]
  - POST PROCEDURAL HAEMORRHAGE [None]
